FAERS Safety Report 8416153-4 (Version None)
Quarter: 2012Q2

REPORT INFORMATION
  Report Type: 
  Country: None (occurrence: None)
  Receive Date: 20120606
  Receipt Date: 20120602
  Transmission Date: 20120825
  Serious: Yes (Other)
  Sender: FDA-Public Use
  Company Number: US-PFIZER INC-2012132745

PATIENT
  Sex: Male
  Weight: 88.435 kg

DRUGS (2)
  1. NEURONTIN [Suspect]
     Indication: PAIN IN EXTREMITY
     Dosage: 100 MG, 2X/DAY
     Dates: start: 20120101, end: 20120501
  2. NEURONTIN [Suspect]
     Indication: NERVE INJURY

REACTIONS (9)
  - ABASIA [None]
  - SYNCOPE [None]
  - MOOD SWINGS [None]
  - PAIN IN EXTREMITY [None]
  - BLADDER DISORDER [None]
  - DRUG WITHDRAWAL SYNDROME [None]
  - DIZZINESS [None]
  - ANGER [None]
  - RASH [None]
